FAERS Safety Report 8797378 (Version 7)
Quarter: 2013Q4

REPORT INFORMATION
  Report Type: Spontaneous
  Country: US (occurrence: US)
  Receive Date: 20120920
  Receipt Date: 20131107
  Transmission Date: 20140711
  Serious: Yes (Hospitalization, Disabling, Other)
  Sender: FDA-Public Use
  Company Number: US-009507513-1209USA004249

PATIENT
  Sex: Female
  Weight: 49.43 kg

DRUGS (4)
  1. FOSAMAX [Suspect]
     Indication: OSTEOPOROSIS
     Dosage: 70 MG, QW ON WED
     Route: 048
     Dates: start: 200611
  2. ALENDRONATE SODIUM [Suspect]
     Indication: OSTEOPOROSIS
     Dosage: 70 MG, UNK
     Route: 048
     Dates: start: 200909, end: 2010
  3. ALENDRONATE SODIUM [Suspect]
     Indication: OSTEOPOROSIS
     Dosage: 70 MG, QW
     Dates: start: 2010
  4. ONE-A-DAY ESSENTIAL VITAMINS [Concomitant]

REACTIONS (46)
  - Femur fracture [Unknown]
  - Hip arthroplasty [Unknown]
  - Fall [Unknown]
  - Femur fracture [Unknown]
  - Intramedullary rod insertion [Unknown]
  - Low turnover osteopathy [Unknown]
  - Haemoglobin decreased [Recovering/Resolving]
  - Hospitalisation [Unknown]
  - Spinal operation [Unknown]
  - Bronchitis [Unknown]
  - Herpes zoster [Unknown]
  - Neuralgia [Not Recovered/Not Resolved]
  - Osteoarthritis [Not Recovered/Not Resolved]
  - Chronic obstructive pulmonary disease [Not Recovered/Not Resolved]
  - Dyslipidaemia [Unknown]
  - Influenza like illness [Unknown]
  - Kidney infection [Unknown]
  - Diphtheria [Unknown]
  - Laceration [Unknown]
  - Fall [Unknown]
  - Chills [Unknown]
  - Upper-airway cough syndrome [Unknown]
  - Confusional state [Unknown]
  - Memory impairment [Unknown]
  - Judgement impaired [Unknown]
  - Skin disorder [Unknown]
  - Limb asymmetry [Unknown]
  - Fracture displacement [Unknown]
  - Fall [Unknown]
  - Rotator cuff syndrome [Unknown]
  - Osteoarthritis [Unknown]
  - Exostosis [Unknown]
  - Spinal osteoarthritis [Unknown]
  - Bone disorder [Unknown]
  - Excoriation [Unknown]
  - Asthma [Unknown]
  - Emphysema [Unknown]
  - Phlebitis [Unknown]
  - Glaucoma surgery [Unknown]
  - Angle closure glaucoma [Unknown]
  - Aortic arteriosclerosis [Unknown]
  - Malaise [Unknown]
  - Pyrexia [Unknown]
  - Vertigo [Not Recovered/Not Resolved]
  - Nausea [Unknown]
  - Constipation [Unknown]
